FAERS Safety Report 5803394-5 (Version None)
Quarter: 2008Q3

REPORT INFORMATION
  Report Type: 
  Country: None (occurrence: None)
  Receive Date: 20080708
  Receipt Date: 20080702
  Transmission Date: 20090109
  Serious: Yes (Other)
  Sender: FDA-Public Use
  Company Number: US-AMGEN-KDL285009

PATIENT
  Sex: Female
  Weight: 54 kg

DRUGS (7)
  1. PROCRIT [Suspect]
     Indication: DRUG USE FOR UNKNOWN INDICATION
     Route: 065
  2. INTERFERON [Concomitant]
     Dates: end: 20071201
  3. BISOPROLOL FUMARATE AND HYDROCHLOROTHIAZIDE [Concomitant]
     Route: 048
  4. METFORMIN HCL [Concomitant]
  5. LOVASTATIN [Concomitant]
     Route: 048
  6. LOTREL [Concomitant]
     Route: 048
  7. GLIMEPIRIDE [Concomitant]

REACTIONS (2)
  - ANTI-ERYTHROPOIETIN ANTIBODY POSITIVE [None]
  - BONE MARROW FAILURE [None]
